FAERS Safety Report 25925282 (Version 1)
Quarter: 2025Q4

REPORT INFORMATION
  Report Type: Spontaneous
  Country: US (occurrence: None)
  Receive Date: 20251013
  Receipt Date: 20251013
  Transmission Date: 20260117
  Serious: Yes (Other)
  Sender: FDA-CTU
  Company Number: None

PATIENT
  Age: 61 Year
  Sex: Female

DRUGS (1)
  1. REPATHA [Suspect]
     Active Substance: EVOLOCUMAB
     Dates: start: 20250301, end: 20251013

REACTIONS (4)
  - Migraine [None]
  - Retinal vascular thrombosis [None]
  - Renal pain [None]
  - Flank pain [None]

NARRATIVE: CASE EVENT DATE: 20251011
